FAERS Safety Report 23652033 (Version 1)
Quarter: 2024Q1

REPORT INFORMATION
  Report Type: Other
  Country: GB (occurrence: GB)
  Receive Date: 20240320
  Receipt Date: 20240320
  Transmission Date: 20240410
  Serious: Yes (Other)
  Sender: FDA-Public Use
  Company Number: GB-VERTICAL PHARMACEUTICALS-2024ALO00051

PATIENT
  Sex: Female

DRUGS (3)
  1. ESTRADIOL [Suspect]
     Active Substance: ESTRADIOL
     Indication: Product used for unknown indication
  2. ESTRONE [Suspect]
     Active Substance: ESTRONE
     Indication: Product used for unknown indication
  3. ESTRIOL [Suspect]
     Active Substance: ESTRIOL
     Indication: Product used for unknown indication

REACTIONS (3)
  - Pollakiuria [Not Recovered/Not Resolved]
  - Micturition urgency [Unknown]
  - Cystitis [Unknown]

NARRATIVE: CASE EVENT DATE: 20240302
